FAERS Safety Report 5916712-4 (Version None)
Quarter: 2008Q4

REPORT INFORMATION
  Report Type: 
  Country: None (occurrence: None)
  Receive Date: 20081013
  Receipt Date: 20080521
  Transmission Date: 20090506
  Serious: Yes (Other)
  Sender: FDA-Public Use
  Company Number: CO-PFIZER INC-2008045821

PATIENT
  Sex: Female

DRUGS (2)
  1. CHANTIX [Suspect]
     Indication: SMOKING CESSATION THERAPY
     Route: 048
     Dates: start: 20080423, end: 20080813
  2. FLUOXETINE [Concomitant]

REACTIONS (3)
  - ANXIETY [None]
  - SUFFOCATION FEELING [None]
  - TACHYCARDIA [None]
